FAERS Safety Report 16051432 (Version 1)
Quarter: 2019Q1

REPORT INFORMATION
  Report Type: Spontaneous
  Country: HU (occurrence: HU)
  Receive Date: 20190308
  Receipt Date: 20190308
  Transmission Date: 20190418
  Serious: Yes (Other)
  Sender: FDA-Public Use
  Company Number: HU-TEVA-2019-HU-1021230

PATIENT
  Age: 45 Year
  Sex: Male
  Weight: 187 kg

DRUGS (5)
  1. VENTOLIN [Concomitant]
     Active Substance: ALBUTEROL SULFATE
     Indication: ASTHMA
     Dosage: PRESSURIZED INHALATION SUSPENSION
     Dates: start: 20150106
  2. BISOPROLOL [Concomitant]
     Active Substance: BISOPROLOL
     Indication: TACHYCARDIA
     Dates: start: 20190220, end: 20190226
  3. SUMAMED 500 MG [Suspect]
     Active Substance: AZITHROMYCIN
     Indication: RESPIRATORY TRACT INFECTION
     Dosage: 500 MILLIGRAM DAILY;
     Route: 048
     Dates: start: 20190220, end: 20190225
  4. REVIX AXAHALER [Concomitant]
     Indication: ASTHMA
     Dosage: 240 MICROGRAMS/20 MICROGRAMS DRY-POWDER INHALER
     Dates: start: 20190220, end: 20190226
  5. SUMAMED 500 MG [Suspect]
     Active Substance: AZITHROMYCIN
     Indication: ASTHMA

REACTIONS (3)
  - Pruritus [Unknown]
  - Toxic skin eruption [Unknown]
  - Viral rash [Unknown]

NARRATIVE: CASE EVENT DATE: 20190224
